FAERS Safety Report 24539398 (Version 2)
Quarter: 2024Q4

REPORT INFORMATION
  Report Type: Spontaneous
  Country: FR (occurrence: FR)
  Receive Date: 20241023
  Receipt Date: 20241026
  Transmission Date: 20250115
  Serious: Yes (Other)
  Sender: Kenvue
  Company Number: None

PATIENT

DRUGS (4)
  1. RHINOCORT [Suspect]
     Active Substance: BUDESONIDE
     Indication: Nasal septum deviation
     Dosage: 1 DOSAGE FORM ONCE A DAY
     Route: 045
     Dates: end: 20240926
  2. SYMBICORT [Suspect]
     Active Substance: BUDESONIDE\FORMOTEROL FUMARATE DIHYDRATE
     Indication: Asthma
     Dosage: 800 MICROGRAM, TWICE A DAY, 2 PUFFS MORNING AND EVENING
     Dates: start: 2022, end: 20240926
  3. SYMBICORT [Suspect]
     Active Substance: BUDESONIDE\FORMOTEROL FUMARATE DIHYDRATE
     Dosage: 800 MICROGRAM, ONCE A  DAY 2 PUFFS MORNING
     Dates: start: 20240926
  4. DIPROSONE [Suspect]
     Active Substance: BETAMETHASONE DIPROPIONATE
     Indication: Product used for unknown indication
     Route: 003

REACTIONS (1)
  - Adrenal insufficiency [Recovering/Resolving]

NARRATIVE: CASE EVENT DATE: 20240816
